FAERS Safety Report 6049946-1 (Version None)
Quarter: 2009Q1

REPORT INFORMATION
  Report Type: 
  Country: None (occurrence: None)
  Receive Date: 20090121
  Receipt Date: 20090105
  Transmission Date: 20090719
  Serious: Yes (Hospitalization)
  Sender: FDA-Public Use
  Company Number: 2009000016

PATIENT
  Age: 44 Year
  Sex: Male

DRUGS (9)
  1. ERLOTINIB (ERLOTINIB) (TABLET) (ERLOTINIB) [Suspect]
     Indication: NON-SMALL CELL LUNG CANCER
     Dosage: (150 MG, QD), ORAL
     Route: 048
     Dates: start: 20081202
  2. BEVACIZUMAB (INJECTION FOR INFUSION) [Suspect]
     Indication: NON-SMALL CELL LUNG CANCER
     Dosage: (1550 MG), INTRAVENOUS
     Route: 042
     Dates: start: 20081202
  3. ACETYLCYSTEINRE (ACETYLCYSTEINE) [Concomitant]
  4. PANTOPRAZOLE SODIUM [Concomitant]
  5. TORSEMIDE [Concomitant]
  6. REKAWAN (POTASSIUM CHLORIDE) [Concomitant]
  7. ZYLORIC [Concomitant]
  8. ENOXAPARIN SODIUM [Concomitant]
  9. NYSTATIN [Concomitant]

REACTIONS (1)
  - PERICARDIAL EFFUSION [None]
